FAERS Safety Report 18491844 (Version 5)
Quarter: 2021Q3

REPORT INFORMATION
  Report Type: Spontaneous
  Country: US (occurrence: US)
  Receive Date: 20201111
  Receipt Date: 20210705
  Transmission Date: 20211014
  Serious: Yes (Hospitalization)
  Sender: FDA-Public Use
  Company Number: US-STRONGBRIDGE BIOPHARMA-2020-STR-000259

PATIENT
  Age: 26 Year
  Sex: Male

DRUGS (7)
  1. KEVEYIS [Suspect]
     Active Substance: DICHLORPHENAMIDE
     Dosage: 100 MG IN THE MORNING AND AT BEDTIME
     Route: 048
  2. KEVEYIS [Suspect]
     Active Substance: DICHLORPHENAMIDE
     Dosage: UNK
     Dates: start: 20171110
  3. KEVEYIS [Suspect]
     Active Substance: DICHLORPHENAMIDE
     Indication: FAMILIAL PERIODIC PARALYSIS
     Dosage: 50 MG IN THE AM AND 100 MG IN THE PM
     Route: 048
  4. KEVEYIS [Suspect]
     Active Substance: DICHLORPHENAMIDE
     Dosage: 50 MG, BID
     Route: 048
     Dates: start: 20191002
  5. TAGAMET [Concomitant]
     Active Substance: CIMETIDINE
  6. SINGULAIR [Concomitant]
     Active Substance: MONTELUKAST SODIUM
  7. OMEPRAZOLE. [Concomitant]
     Active Substance: OMEPRAZOLE

REACTIONS (6)
  - Gastrointestinal disorder [Not Recovered/Not Resolved]
  - Nerve injury [Unknown]
  - Weight decreased [Not Recovered/Not Resolved]
  - Condition aggravated [Unknown]
  - Feeding disorder [Unknown]
  - Therapy responder [Unknown]

NARRATIVE: CASE EVENT DATE: 20210420
